FAERS Safety Report 24306170 (Version 3)
Quarter: 2024Q4

REPORT INFORMATION
  Report Type: Report from Study
  Country: US (occurrence: US)
  Receive Date: 20240911
  Receipt Date: 20241025
  Transmission Date: 20250115
  Serious: Yes (Hospitalization, Other)
  Sender: AMGEN
  Company Number: US-AMGEN-USASL2024179274

PATIENT
  Age: 58 Year
  Sex: Female

DRUGS (2)
  1. OTEZLA [Suspect]
     Active Substance: APREMILAST
     Indication: Psoriasis
     Dosage: UNK
     Route: 048
     Dates: start: 2022
  2. OTEZLA [Suspect]
     Active Substance: APREMILAST
     Indication: Arthritis
     Dosage: 30 MILLIGRAM, BID
     Route: 048
     Dates: start: 202409

REACTIONS (4)
  - Benign cardiac neoplasm [Unknown]
  - Drug ineffective [Unknown]
  - Illness [Unknown]
  - Therapy interrupted [Unknown]

NARRATIVE: CASE EVENT DATE: 20220101
